FAERS Safety Report 5285361-6 (Version None)
Quarter: 2007Q2

REPORT INFORMATION
  Report Type: 
  Country: None (occurrence: None)
  Receive Date: 20070403
  Receipt Date: 20070329
  Transmission Date: 20071010
  Serious: Yes (Other)
  Sender: FDA-Public Use
  Company Number: US-SHR-US-2007-011234

PATIENT
  Age: 32 Year
  Sex: Female
  Weight: 45 kg

DRUGS (2)
  1. YASMIN [Suspect]
     Route: 048
     Dates: start: 20070325, end: 20070327
  2. IRON [Concomitant]

REACTIONS (1)
  - CHEST PAIN [None]
